FAERS Safety Report 10612188 (Version 1)
Quarter: 2014Q4

REPORT INFORMATION
  Report Type: Spontaneous
  Country: US (occurrence: US)
  Receive Date: 20141127
  Receipt Date: 20141127
  Transmission Date: 20150529
  Serious: No
  Sender: FDA-Public Use
  Company Number: US-DRREDDYS-USA/USA/14/0043188

PATIENT
  Age: 33 Year
  Sex: Female

DRUGS (3)
  1. ESTRADIOL. [Suspect]
     Active Substance: ESTRADIOL
     Indication: ENDOMETRIAL HYPOPLASIA
     Route: 067
  2. SILDENAFIL. [Suspect]
     Active Substance: SILDENAFIL
     Indication: ENDOMETRIAL HYPOPLASIA
     Route: 067
  3. ESTRADIOL. [Suspect]
     Active Substance: ESTRADIOL
     Route: 048

REACTIONS (3)
  - Product quality issue [Unknown]
  - Off label use [Unknown]
  - Drug ineffective [Unknown]
